FAERS Safety Report 10311062 (Version 1)
Quarter: 2014Q3

REPORT INFORMATION
  Report Type: Spontaneous
  Country: IT (occurrence: None)
  Receive Date: 20140714
  Receipt Date: 20140714
  Transmission Date: 20150326
  Serious: Yes (Hospitalization)
  Sender: FDA-Public Use
  Company Number: 2014DEPIT00596

PATIENT
  Age: 63 Year
  Sex: Female

DRUGS (6)
  1. METHOTREXATE (METHOTREXATE SODIUM) [Suspect]
     Active Substance: METHOTREXATE SODIUM
     Indication: DIFFUSE LARGE B-CELL LYMPHOMA RECURRENT
     Dosage: 5600 MG (3.5 G/M2) ON DAY 1 OF EACH CYCLE (TOTAL 3 CYCLES), INTRAVENOUS?
     Route: 042
     Dates: start: 20140302, end: 20140403
  2. MABTHERA [Suspect]
     Active Substance: RITUXIMAB
     Indication: DIFFUSE LARGE B-CELL LYMPHOMA RECURRENT
     Dosage: 600 MG ON DAY 0 OF EACH CYCLE (3 CYCLES IN TOTAL), INTRAVENOUS
     Route: 042
     Dates: start: 20140301, end: 20140402
  3. THIOTEPA (THIOTEPA) [Suspect]
     Active Substance: THIOTEPA
     Indication: DIFFUSE LARGE B-CELL LYMPHOMA RECURRENT
     Dosage: 48 MG (30 MG/M2) ON DAY 4 OF EACH CYCLE (3 CYCLES IN TOTAL), INTRAVENOUS?
     Route: 042
     Dates: start: 20140303, end: 20140406
  4. STEROID ANTIBACTERIALS [Suspect]
     Active Substance: UNSPECIFIED INGREDIENT
  5. DEPOCYT(E) (CYTARABINE) LIPOSOME INJECTABLE SUSPENSION, MG [Suspect]
     Active Substance: CYTARABINE
     Indication: DIFFUSE LARGE B-CELL LYMPHOMA RECURRENT
     Dosage: 50 MG ON DAY 5 OF EACH CYCLE (3 CYCLES IN TOTAL), INTRATHECAL?
     Route: 037
     Dates: start: 20140306, end: 20140407
  6. CYTARABINE (CYTARABINE) [Suspect]
     Active Substance: CYTARABINE
     Indication: DIFFUSE LARGE B-CELL LYMPHOMA RECURRENT
     Dosage: 12800 MG (2 G/M2/12H) ON DAY 2-3 OF EACH CYCLE (TOTAL 3 CYCLES), INTRAVENOUS
     Route: 042
     Dates: start: 20140303, end: 20140405

REACTIONS (2)
  - Platelet count decreased [None]
  - Febrile neutropenia [None]

NARRATIVE: CASE EVENT DATE: 20140413
